FAERS Safety Report 13015051 (Version 5)
Quarter: 2018Q1

REPORT INFORMATION
  Report Type: Report from Study
  Country: KR (occurrence: KR)
  Receive Date: 20161210
  Receipt Date: 20180216
  Transmission Date: 20180508
  Serious: Yes (Hospitalization)
  Sender: FDA-Public Use
  Company Number: KR-AMGEN-KORCT2016174894

PATIENT
  Age: 19 Year
  Sex: Female
  Weight: 40.5 kg

DRUGS (25)
  1. RITUXIMAB. [Suspect]
     Active Substance: RITUXIMAB
     Dosage: 1400 MG, SINGLE DOSE CYCLE 2 DAY 1
     Route: 058
     Dates: start: 20160725, end: 20160725
  2. BENDAMUSTINE [Suspect]
     Active Substance: BENDAMUSTINE
     Indication: DIFFUSE LARGE B-CELL LYMPHOMA
     Dosage: 120 MG/M2,CYCLE L DAY 2 AND 3
     Route: 042
     Dates: start: 20160705, end: 20160706
  3. BENDAMUSTINE [Suspect]
     Active Substance: BENDAMUSTINE
     Dosage: 120 MG/M2,CYCLE 3 DAY L AND 2
     Route: 042
     Dates: start: 20160901, end: 20160901
  4. BENDAMUSTINE [Suspect]
     Active Substance: BENDAMUSTINE
     Dosage: 83 MG, CYCLE 4 DAY 1 AND 2
     Route: 042
     Dates: start: 20161013, end: 20161014
  5. CRAVIT [Concomitant]
     Active Substance: LEVOFLOXACIN
     Dosage: UNK UNK, QID
     Route: 048
     Dates: start: 20170411
  6. CORTISOLU [Concomitant]
     Active Substance: HYDROCORTISONE SODIUM SUCCINATE
     Dosage: ONCE
     Route: 065
     Dates: start: 20170328
  7. RAPAMUNE [Concomitant]
     Active Substance: SIROLIMUS
     Dosage: 2 MG, QD
     Route: 048
     Dates: start: 20170417
  8. CYMEVEN                            /00784202/ [Concomitant]
     Dosage: 500 MG, QD
     Route: 065
     Dates: start: 20161221
  9. CIPROBAY                           /00697201/ [Concomitant]
     Active Substance: CIPROFLOXACIN
     Dosage: 250 MG, BID
     Route: 065
     Dates: start: 20170725, end: 20170730
  10. REFRESH PLUS [Concomitant]
     Active Substance: CARBOXYMETHYLCELLULOSE SODIUM
     Dosage: 0.5 MG, UNK
     Route: 065
     Dates: end: 20170612
  11. COMBIGAN [Concomitant]
     Active Substance: BRIMONIDINE TARTRATE\TIMOLOL MALEATE
     Dosage: UNK, BID
     Route: 065
     Dates: start: 20170605
  12. BIOFLOR [Concomitant]
     Dosage: 250 MG,2 IN 2 D
     Route: 065
     Dates: start: 20170725, end: 20170730
  13. SMECTA [Concomitant]
     Active Substance: MONTMORILLONITE
     Dosage: 20 ML, TID
     Route: 065
     Dates: start: 20170725
  14. RITUXIMAB. [Suspect]
     Active Substance: RITUXIMAB
     Dosage: 1400 MG, SINGLE DOSE,CYCLE 3 DAY 1
     Route: 058
     Dates: start: 20161013, end: 20161013
  15. RAPAMUNE [Concomitant]
     Active Substance: SIROLIMUS
     Dosage: 1 MG, QD
     Route: 065
     Dates: start: 20170417
  16. CALCORT [Concomitant]
     Active Substance: DEFLAZACORT
     Dosage: 6 MG, QD
     Route: 065
     Dates: start: 20170417
  17. LIPITOR [Concomitant]
     Active Substance: ATORVASTATIN CALCIUM
     Dosage: 10 MG, QD
     Route: 065
     Dates: start: 20171120, end: 20171226
  18. VALCYTE [Concomitant]
     Active Substance: VALGANCICLOVIR HYDROCHLORIDE
     Dosage: 450 MG, BID
     Route: 065
     Dates: start: 20170309, end: 20170316
  19. PEGFILGRASTIM [Suspect]
     Active Substance: PEGFILGRASTIM
     Indication: DIFFUSE LARGE B-CELL LYMPHOMA
     Dosage: 6 MG, CYCLE 4 DAY 3
     Route: 058
     Dates: start: 20161016
  20. RITUXIMAB. [Suspect]
     Active Substance: RITUXIMAB
     Dosage: 1400 MG, SINGLE DOSE,CYCLE 3 DAY 1
     Route: 058
     Dates: start: 20160901, end: 20160901
  21. TROPHERINE [Concomitant]
     Dosage: 0.8 %, QD
     Route: 065
     Dates: start: 20170425
  22. PARACAINE [Concomitant]
     Active Substance: PROPARACAINE HYDROCHLORIDE
     Dosage: 0.5 %, QD
     Route: 065
     Dates: start: 20170411
  23. RITUXIMAB. [Suspect]
     Active Substance: RITUXIMAB
     Indication: DIFFUSE LARGE B-CELL LYMPHOMA
     Dosage: 375 MG/M2, SINGLE DOSE,CYCLE FIRST DAY 1
     Route: 058
     Dates: start: 20160704, end: 20160704
  24. BENDAMUSTINE [Suspect]
     Active Substance: BENDAMUSTINE
     Dosage: 120 MG/M2,CYCLE 2 DAY L AND 2
     Route: 042
     Dates: start: 20160725, end: 20160726
  25. PENIRAMIN [Concomitant]
     Dosage: ONCE (4 MG)
     Route: 065
     Dates: start: 20170328

REACTIONS (1)
  - Cytomegalovirus infection [Recovering/Resolving]

NARRATIVE: CASE EVENT DATE: 20161126
